FAERS Safety Report 7227909-8 (Version None)
Quarter: 2011Q1

REPORT INFORMATION
  Report Type: 
  Country: None (occurrence: None)
  Receive Date: 20110111
  Receipt Date: 20110111
  Transmission Date: 20110831
  Serious: Yes (Other)
  Sender: FDA-Public Use
  Company Number: None

PATIENT
  Age: 49 Year
  Sex: Female
  Weight: 80.2867 kg

DRUGS (2)
  1. CYMBALTA [Suspect]
     Indication: DEPRESSION
     Dosage: 60 MG DAILY PO
     Route: 048
     Dates: start: 20060101, end: 20101201
  2. CYMBALTA [Suspect]
     Dosage: 30 MG DAILY PO
     Route: 048
     Dates: start: 20100101, end: 20100131

REACTIONS (10)
  - NAUSEA [None]
  - AMNESIA [None]
  - FATIGUE [None]
  - IRRITABILITY [None]
  - DRUG WITHDRAWAL SYNDROME [None]
  - VISUAL IMPAIRMENT [None]
  - DIZZINESS [None]
  - MOOD SWINGS [None]
  - DISTURBANCE IN ATTENTION [None]
  - NERVOUS SYSTEM DISORDER [None]
